FAERS Safety Report 5124144-4 (Version None)
Quarter: 2006Q4

REPORT INFORMATION
  Report Type: 
  Country: None (occurrence: None)
  Receive Date: 20061010
  Receipt Date: 20060419
  Transmission Date: 20070319
  Serious: No
  Sender: FDA-Public Use
  Company Number: US-BRISTOL-MYERS SQUIBB COMPANY-13352612

PATIENT

DRUGS (1)
  1. AVAPRO [Suspect]
     Dosage: DURATION: 3 YEARS

REACTIONS (5)
  - DIZZINESS [None]
  - FATIGUE [None]
  - HERPES ZOSTER [None]
  - NAUSEA [None]
  - UPPER RESPIRATORY TRACT INFECTION [None]
